FAERS Safety Report 4833263-9 (Version None)
Quarter: 2005Q4

REPORT INFORMATION
  Report Type: 
  Country: None (occurrence: None)
  Receive Date: 20051117
  Receipt Date: 20051108
  Transmission Date: 20060501
  Serious: Yes (Hospitalization)
  Sender: FDA-Public Use
  Company Number: DE_051017310

PATIENT
  Age: 71 Year
  Sex: Male

DRUGS (2)
  1. YENTREVE (DULOXETINE HYDROCHLORIDE) [Suspect]
     Indication: STRESS INCONTINENCE
     Dosage: 20 MG DAY
     Dates: start: 20050620, end: 20050101
  2. PRELIS (METOPROLOL TARTRATE) [Concomitant]

REACTIONS (10)
  - ALCOHOL POISONING [None]
  - AMNESIA [None]
  - CARDIAC MURMUR [None]
  - DELIRIUM [None]
  - EUPHORIC MOOD [None]
  - FALL [None]
  - HYPERTENSION [None]
  - LOGORRHOEA [None]
  - MANIA [None]
  - PARANOIA [None]
